FAERS Safety Report 5826877-0 (Version None)
Quarter: 2008Q3

REPORT INFORMATION
  Report Type: 
  Country: None (occurrence: None)
  Receive Date: 20080725
  Receipt Date: 20080721
  Transmission Date: 20090109
  Serious: Yes (Other)
  Sender: FDA-Public Use
  Company Number: 2008SP008677

PATIENT
  Age: 51 Year
  Sex: Male

DRUGS (6)
  1. VIRAFERONPEG (PEGINTERFERON ALFA-2B) (PEGINTERFERON ALFA-2B) [Suspect]
     Indication: HEPATITIS C
     Dates: start: 20080319
  2. REBETOL [Suspect]
     Indication: HEPATITIS C
     Dosage: 1000 MG; QD;
     Dates: start: 20080319
  3. ATENOLOL (CON.) [Concomitant]
  4. GABAPENTIN (CON.) [Concomitant]
  5. LANSOPRAZOLE (CON.) [Concomitant]
  6. ASPIRIN (CON.) [Concomitant]

REACTIONS (6)
  - ATRIOVENTRICULAR BLOCK COMPLETE [None]
  - ATRIOVENTRICULAR BLOCK SECOND DEGREE [None]
  - BRADYCARDIA [None]
  - CHEST DISCOMFORT [None]
  - INFLUENZA LIKE ILLNESS [None]
  - MALAISE [None]
